FAERS Safety Report 8336190-8 (Version None)
Quarter: 2012Q2

REPORT INFORMATION
  Report Type: 
  Country: None (occurrence: None)
  Receive Date: 20120504
  Receipt Date: 20120501
  Transmission Date: 20120825
  Serious: No
  Sender: FDA-Public Use
  Company Number: US-PFIZER INC-2012067799

PATIENT
  Sex: Female
  Weight: 76.644 kg

DRUGS (4)
  1. LUNESTA [Concomitant]
     Indication: INSOMNIA
     Dosage: UNK
     Dates: end: 20110725
  2. EFFEXOR XR [Suspect]
     Indication: ANXIETY
     Dosage: UNK
     Route: 048
     Dates: start: 20090101
  3. EFFEXOR XR [Suspect]
     Indication: DEPRESSION
  4. ALPRAZOLAM [Concomitant]
     Indication: ANXIETY
     Dosage: UNK
     Dates: end: 20120126

REACTIONS (1)
  - ANXIETY [None]
